FAERS Safety Report 9840915 (Version 1)
Quarter: 2014Q1

REPORT INFORMATION
  Report Type: Spontaneous
  Country: US (occurrence: None)
  Receive Date: 20140123
  Receipt Date: 20140123
  Transmission Date: 20141002
  Serious: Yes (Death)
  Sender: FDA-Public Use
  Company Number: None

PATIENT
  Age: 75 Year
  Sex: Male

DRUGS (2)
  1. MYCOPHENOLATE [Suspect]
     Indication: HEART TRANSPLANT
     Route: 048
     Dates: start: 20010927, end: 20140107
  2. MYCOPHENOLATE [Suspect]
     Indication: TYPE 2 DIABETES MELLITUS
     Route: 048
     Dates: start: 20010927, end: 20140107

REACTIONS (1)
  - Renal failure [None]
